FAERS Safety Report 7779867-5 (Version None)
Quarter: 2011Q3

REPORT INFORMATION
  Report Type: 
  Country: None (occurrence: None)
  Receive Date: 20110927
  Receipt Date: 20110921
  Transmission Date: 20111222
  Serious: Yes (Hospitalization)
  Sender: FDA-Public Use
  Company Number: US-B.I. PHARMACEUTICALS,INC./RIDGEFIELD-2011-BP-20880BP

PATIENT
  Age: 66 Year
  Sex: Male

DRUGS (11)
  1. SIMVASTATIN [Concomitant]
  2. LISINOPRIL [Concomitant]
  3. ASPIRIN [Concomitant]
  4. MEDICATIONS NOT FURTHER SPECIFIED [Concomitant]
  5. TENORMIN [Concomitant]
  6. CLONAZEPAM [Concomitant]
  7. METHADONE HCL [Concomitant]
  8. VENTOLIN HFA [Concomitant]
  9. COMBIVENT [Suspect]
     Indication: CHRONIC OBSTRUCTIVE PULMONARY DISEASE
     Route: 055
     Dates: start: 20101101
  10. SPIRIVA [Concomitant]
  11. ALBUTEROL [Concomitant]

REACTIONS (3)
  - JOINT SWELLING [None]
  - CHRONIC OBSTRUCTIVE PULMONARY DISEASE [None]
  - OEDEMA PERIPHERAL [None]
